FAERS Safety Report 7789500-4 (Version None)
Quarter: 2011Q3

REPORT INFORMATION
  Report Type: 
  Country: None (occurrence: None)
  Receive Date: 20110930
  Receipt Date: 20110922
  Transmission Date: 20111222
  Serious: Yes (Other)
  Sender: FDA-Public Use
  Company Number: US-US-EMD SERONO, INC.-7081660

PATIENT
  Sex: Male

DRUGS (1)
  1. REBIF [Suspect]
     Indication: MULTIPLE SCLEROSIS
     Route: 058
     Dates: start: 20110303

REACTIONS (5)
  - IRRITABILITY [None]
  - TRANSIENT ISCHAEMIC ATTACK [None]
  - POOR PERSONAL HYGIENE [None]
  - FALL [None]
  - MEMORY IMPAIRMENT [None]
